FAERS Safety Report 9481751 (Version 2)
Quarter: 2013Q3

REPORT INFORMATION
  Report Type: Spontaneous
  Country: CA (occurrence: CA)
  Receive Date: 20130828
  Receipt Date: 20130828
  Transmission Date: 20140515
  Serious: Yes (Hospitalization)
  Sender: FDA-Public Use
  Company Number: CA-AMGEN-KDL225219

PATIENT
  Age: 64 Year
  Sex: Female

DRUGS (2)
  1. ENBREL [Suspect]
     Indication: RHEUMATOID ARTHRITIS
     Dosage: 50 MG, QWK
     Route: 058
     Dates: start: 20061020
  2. PREDNISONE [Concomitant]
     Dosage: UNK UNK, UNK
     Dates: start: 200704

REACTIONS (4)
  - Knee arthroplasty [Unknown]
  - Postoperative wound infection [Unknown]
  - Rheumatoid arthritis [Unknown]
  - Venous pressure increased [Unknown]
